FAERS Safety Report 15560723 (Version 2)
Quarter: 2019Q1

REPORT INFORMATION
  Report Type: Spontaneous
  Country: US (occurrence: US)
  Receive Date: 20181029
  Receipt Date: 20190312
  Transmission Date: 20190417
  Serious: No
  Sender: FDA-Public Use
  Company Number: US-PFIZER INC-2017319354

PATIENT
  Age: 54 Year
  Sex: Female
  Weight: 78.91 kg

DRUGS (7)
  1. VITAMIN D [Concomitant]
     Active Substance: CHOLECALCIFEROL
     Dosage: UNK
  2. LISINOPRIL. [Concomitant]
     Active Substance: LISINOPRIL
     Dosage: UNK
  3. NICOTROL [Concomitant]
     Active Substance: NICOTINE
     Dosage: UNK
  4. CELEBREX [Concomitant]
     Active Substance: CELECOXIB
     Dosage: UNK
  5. LYRICA [Suspect]
     Active Substance: PREGABALIN
     Dosage: 225 MG, DAILY, 3 CAPSULES PER DAY (75MG IN THE MORNING AND TWO 75MG CAPSULES AT NIGHT)
     Route: 048
     Dates: start: 201808
  6. VIT B COMPLEX [Concomitant]
     Dosage: UNK
  7. LYRICA [Suspect]
     Active Substance: PREGABALIN
     Indication: FIBROMYALGIA
     Dosage: 75 MG, 2X/DAY
     Route: 048

REACTIONS (5)
  - Fibromyalgia [Recovering/Resolving]
  - Intentional product misuse [Unknown]
  - Meniscus injury [Unknown]
  - Restlessness [Recovering/Resolving]
  - Insomnia [Recovering/Resolving]

NARRATIVE: CASE EVENT DATE: 2017
